FAERS Safety Report 24099054 (Version 1)
Quarter: 2024Q3

REPORT INFORMATION
  Report Type: Spontaneous
  Country: US (occurrence: US)
  Receive Date: 20240716
  Receipt Date: 20240716
  Transmission Date: 20241017
  Serious: No
  Sender: NOVO NORDISK
  Company Number: US-NOVOPROD-1166676

PATIENT
  Age: 58 Year
  Sex: Female

DRUGS (3)
  1. OZEMPIC [Suspect]
     Active Substance: SEMAGLUTIDE
     Dosage: 1MG
     Route: 058
     Dates: start: 202301
  2. OZEMPIC [Suspect]
     Active Substance: SEMAGLUTIDE
     Indication: Type 2 diabetes mellitus
     Dosage: 2MG
     Route: 058
     Dates: start: 202301, end: 202301
  3. BISMUTH SUBSALICYLATE\CALCIUM CARBONATE [Suspect]
     Active Substance: BISMUTH SUBSALICYLATE\CALCIUM CARBONATE
     Indication: Dyspepsia
     Dosage: UNK
     Dates: start: 202301

REACTIONS (3)
  - Muscle spasms [Unknown]
  - Dyspepsia [Unknown]
  - Off label use [Unknown]

NARRATIVE: CASE EVENT DATE: 20230101
